FAERS Safety Report 10568118 (Version 1)
Quarter: 2014Q4

REPORT INFORMATION
  Report Type: Spontaneous
  Country: US (occurrence: None)
  Receive Date: 20141024
  Receipt Date: 20141024
  Transmission Date: 20150529
  Serious: Yes (Other)
  Sender: FDA-Public Use
  Company Number: AXC-2014-000467

PATIENT
  Age: 47 Year
  Sex: Female

DRUGS (3)
  1. ZENPEP [Suspect]
     Active Substance: PANCRELIPASE\PANCRELIPASE AMYLASE\PANCRELIPASE LIPASE\PANCRELIPASE PROTEASE
     Indication: PANCREATIC INSUFFICIENCY
     Dosage: 1 CAP TID WITH MEALS, ORAL
     Route: 048
     Dates: start: 201306, end: 201407
  2. LEVOTHYROXINE (LEVOTHYROXINE) [Concomitant]
     Active Substance: LEVOTHYROXINE
  3. ATENOLOL (ATENOLOL) [Concomitant]
     Active Substance: ATENOLOL

REACTIONS (3)
  - Arthralgia [None]
  - Joint swelling [None]
  - Diarrhoea [None]

NARRATIVE: CASE EVENT DATE: 2013
